FAERS Safety Report 6652489-5 (Version None)
Quarter: 2010Q1

REPORT INFORMATION
  Report Type: 
  Country: None (occurrence: None)
  Receive Date: 20100323
  Receipt Date: 20100310
  Transmission Date: 20100710
  Serious: Yes (Life-Threatening, Hospitalization)
  Sender: FDA-Public Use
  Company Number: 2010AP000487

PATIENT

DRUGS (1)
  1. RANITIDINE HYDROCHLORIDE [Suspect]
     Dosage: PO
     Route: 048

REACTIONS (4)
  - ANAPHYLACTOID REACTION [None]
  - CIRCULATORY COLLAPSE [None]
  - DYSPNOEA [None]
  - SWELLING FACE [None]
